FAERS Safety Report 21240907 (Version 1)
Quarter: 2022Q3

REPORT INFORMATION
  Report Type: Spontaneous
  Country: US (occurrence: US)
  Receive Date: 20220823
  Receipt Date: 20220823
  Transmission Date: 20221027
  Serious: No
  Sender: FDA-Public Use
  Company Number: US-Accord-263176

PATIENT
  Sex: Male
  Weight: 86.64 kg

DRUGS (1)
  1. DILTIAZEM [Suspect]
     Active Substance: DILTIAZEM
     Indication: Atrial fibrillation
     Dosage: 120MG/2 CAPS 2 X DAILY
     Dates: start: 202105

REACTIONS (2)
  - Product residue present [Unknown]
  - Off label use [Unknown]
